FAERS Safety Report 22051354 (Version 1)
Quarter: 2023Q1

REPORT INFORMATION
  Report Type: Spontaneous
  Country: US (occurrence: US)
  Receive Date: 20230301
  Receipt Date: 20230301
  Transmission Date: 20230418
  Serious: Yes (Death, Life-Threatening)
  Sender: FDA-Public Use
  Company Number: US-drreddys-LIT/USA/23/0161627

PATIENT
  Age: 33 Year
  Sex: Female

DRUGS (9)
  1. DEXAMETHASONE [Suspect]
     Active Substance: DEXAMETHASONE
     Indication: Adult T-cell lymphoma/leukaemia
  2. NELARABINE [Suspect]
     Active Substance: NELARABINE
     Indication: Adult T-cell lymphoma/leukaemia
  3. ADRIAMYCIN [Suspect]
     Active Substance: DOXORUBICIN HYDROCHLORIDE
     Indication: Adult T-cell lymphoma/leukaemia
     Dosage: COMPLETED 2 CYCLES?HYPER-CVAD REGIMEN
  4. CYCLOPHOSPHAMIDE [Suspect]
     Active Substance: CYCLOPHOSPHAMIDE
     Indication: Adult T-cell lymphoma/leukaemia
     Dosage: COMPLETED 2 CYCLES?HYPER-CVAD REGIMEN
  5. VINCRISTINE [Suspect]
     Active Substance: VINCRISTINE
     Indication: Adult T-cell lymphoma/leukaemia
     Dosage: COMPLETED 2 CYCLES?HYPER-CVAD REGIMEN
  6. METHOTREXATE [Suspect]
     Active Substance: METHOTREXATE
     Indication: Adult T-cell lymphoma/leukaemia
     Dosage: COMPLETED 2 CYCLES
  7. CYTARABINE [Suspect]
     Active Substance: CYTARABINE
     Indication: Adult T-cell lymphoma/leukaemia
     Dosage: COMPLETED 2 CYCLES
  8. LEUCOVORIN [Suspect]
     Active Substance: LEUCOVORIN
     Indication: Adult T-cell lymphoma/leukaemia
     Dosage: COMPLETED 2 CYCLES
  9. METHYLPREDNISOLONE [Suspect]
     Active Substance: METHYLPREDNISOLONE
     Indication: Adult T-cell lymphoma/leukaemia
     Dosage: COMPLETED 2 CYCLES

REACTIONS (2)
  - Adult T-cell lymphoma/leukaemia refractory [Fatal]
  - Drug ineffective [Unknown]
